FAERS Safety Report 7906771-1 (Version None)
Quarter: 2011Q4

REPORT INFORMATION
  Report Type: 
  Country: None (occurrence: None)
  Receive Date: 20111109
  Receipt Date: 20111109
  Transmission Date: 20120403
  Serious: Yes (Life-Threatening, Disabling)
  Sender: FDA-Public Use
  Company Number: None

PATIENT
  Sex: Female
  Weight: 70.3075 kg

DRUGS (2)
  1. RITUXAN [Suspect]
     Indication: RHEUMATOID ARTHRITIS
     Dosage: I.V.
     Route: 042
     Dates: start: 20090706
  2. RITUXAN [Suspect]
     Indication: RHEUMATOID ARTHRITIS
     Dosage: I.V.
     Route: 042
     Dates: start: 20090618

REACTIONS (4)
  - MOBILITY DECREASED [None]
  - DIZZINESS [None]
  - OEDEMA PERIPHERAL [None]
  - ATRIAL FIBRILLATION [None]
